FAERS Safety Report 21302165 (Version 1)
Quarter: 2022Q3

REPORT INFORMATION
  Report Type: Spontaneous
  Country: US (occurrence: US)
  Receive Date: 20220907
  Receipt Date: 20220907
  Transmission Date: 20221027
  Serious: No
  Sender: FDA-Public Use
  Company Number: US-PFIZER INC-PV202200058290

PATIENT
  Age: 66 Year
  Sex: Male

DRUGS (1)
  1. LORBRENA [Suspect]
     Active Substance: LORLATINIB
     Dosage: TAKE 1 TABLET BY MOUTH DAILY
     Route: 048

REACTIONS (3)
  - Mental status changes [Unknown]
  - Confusional state [Unknown]
  - Disorientation [Unknown]
